FAERS Safety Report 20596019 (Version 2)
Quarter: 2022Q1

REPORT INFORMATION
  Report Type: Spontaneous
  Country: US (occurrence: None)
  Receive Date: 20220315
  Receipt Date: 20220316
  Transmission Date: 20220423
  Serious: No
  Sender: FDA-Public Use
  Company Number: US-ROCHE-2803977

PATIENT
  Sex: Male
  Weight: 107.60 kg

DRUGS (2)
  1. XOLAIR [Suspect]
     Active Substance: OMALIZUMAB
     Indication: Urticaria chronic
     Dosage: 4 SHOTS A MONTH
     Route: 058
  2. XOLAIR [Suspect]
     Active Substance: OMALIZUMAB
     Indication: Asthma
     Route: 058
     Dates: start: 20130712

REACTIONS (3)
  - Insomnia [Recovered/Resolved with Sequelae]
  - Weight increased [Not Recovered/Not Resolved]
  - Off label use [Unknown]
